FAERS Safety Report 20075194 (Version 2)
Quarter: 2021Q4

REPORT INFORMATION
  Report Type: Spontaneous
  Country: US (occurrence: US)
  Receive Date: 20211116
  Receipt Date: 20211215
  Transmission Date: 20220303
  Serious: No
  Sender: FDA-Public Use
  Company Number: US-PFIZER INC-202101395986

PATIENT
  Age: 52 Year
  Sex: Female

DRUGS (1)
  1. GENOTROPIN [Suspect]
     Active Substance: SOMATROPIN
     Dosage: UNK

REACTIONS (10)
  - Incorrect dose administered by device [Unknown]
  - Device information output issue [Unknown]
  - Device leakage [Unknown]
  - Feeling abnormal [Unknown]
  - Stress [Unknown]
  - Tension [Unknown]
  - Depression [Unknown]
  - Fatigue [Unknown]
  - Condition aggravated [Unknown]
  - Cognitive disorder [Unknown]
